FAERS Safety Report 9751830 (Version 5)
Quarter: 2015Q4

REPORT INFORMATION
  Report Type: Report from Study
  Country: US (occurrence: US)
  Receive Date: 20131213
  Receipt Date: 20151019
  Transmission Date: 20160305
  Serious: Yes (Other)
  Sender: FDA-Public Use
  Company Number: US-ROCHE-1314873

PATIENT
  Age: 63 Year
  Sex: Female

DRUGS (23)
  1. PREMARIN [Concomitant]
     Active Substance: ESTROGENS, CONJUGATED
     Route: 048
     Dates: start: 20131023
  2. ZEGERID OTC [Concomitant]
     Active Substance: OMEPRAZOLE\SODIUM BICARBONATE
     Dosage: DOSE : 40 TO 1100 MG.
     Route: 048
     Dates: start: 20130611
  3. ZOCOR [Concomitant]
     Active Substance: SIMVASTATIN
     Route: 048
     Dates: start: 20131023
  4. PREDNISONE. [Concomitant]
     Active Substance: PREDNISONE
     Route: 048
     Dates: start: 20130723
  5. ESTRADIOL. [Concomitant]
     Active Substance: ESTRADIOL
     Route: 048
     Dates: start: 20130612
  6. LEXAPRO [Concomitant]
     Active Substance: ESCITALOPRAM OXALATE
     Route: 048
     Dates: start: 20131122
  7. ACETYLSALICYLIC ACID [Concomitant]
     Active Substance: ASPIRIN
     Route: 065
  8. PLAVIX [Concomitant]
     Active Substance: CLOPIDOGREL BISULFATE
     Route: 065
  9. CELLCEPT [Suspect]
     Active Substance: MYCOPHENOLATE MOFETIL\MYCOPHENOLATE MOFETIL HYDROCHLORIDE
     Indication: SYSTEMIC LUPUS ERYTHEMATOSUS
     Dosage: 2 CAP IN AM AND 1 IN PM FOR ONE WEEK
     Route: 048
  10. CELLCEPT [Suspect]
     Active Substance: MYCOPHENOLATE MOFETIL\MYCOPHENOLATE MOFETIL HYDROCHLORIDE
     Indication: SYSTEMIC LUPUS ERYTHEMATOSUS
     Dosage: 2 TABLETS OF 500MG TWICE DAILY
     Route: 048
  11. PAROXETINE HCL [Concomitant]
     Active Substance: PAROXETINE HYDROCHLORIDE
     Route: 065
  12. PLAQUENIL [Concomitant]
     Active Substance: HYDROXYCHLOROQUINE SULFATE
  13. SOLU-MEDROL [Concomitant]
     Active Substance: METHYLPREDNISOLONE SODIUM SUCCINATE
  14. MAXZIDE [Concomitant]
     Active Substance: HYDROCHLOROTHIAZIDE\TRIAMTERENE
     Dosage: DOSE : 25 37.5-2 MG.
     Route: 048
     Dates: start: 20130207
  15. METHOTREXATE [Concomitant]
     Active Substance: METHOTREXATE
  16. COUMADIN [Concomitant]
     Active Substance: WARFARIN SODIUM
  17. FOLIC ACID. [Concomitant]
     Active Substance: FOLIC ACID
     Route: 048
     Dates: start: 20131025
  18. ALPRAZOLAM. [Concomitant]
     Active Substance: ALPRAZOLAM
     Route: 048
     Dates: start: 20131028
  19. CYTOXAN [Concomitant]
     Active Substance: CYCLOPHOSPHAMIDE
  20. RITUXAN [Suspect]
     Active Substance: RITUXIMAB
     Indication: SYSTEMIC LUPUS ERYTHEMATOSUS
     Dosage: DAY 1 AND DAY 15
     Route: 042
     Dates: start: 201211
  21. PROPRANOLOL [Concomitant]
     Active Substance: PROPRANOLOL\PROPRANOLOL HYDROCHLORIDE
  22. TOPIRAMATE. [Concomitant]
     Active Substance: TOPIRAMATE
     Dosage: 1-3 TABLET EVERY NIGHT AT BED TIME
     Route: 065
     Dates: start: 20131023
  23. ALLEGRA [Concomitant]
     Active Substance: FEXOFENADINE HYDROCHLORIDE
     Route: 065

REACTIONS (28)
  - Diplopia [Unknown]
  - Dry mouth [Unknown]
  - Muscle spasms [Unknown]
  - Off label use [Unknown]
  - Cerebrovascular accident [Unknown]
  - Tremor [Unknown]
  - Hemiparesis [Unknown]
  - Dry eye [Unknown]
  - Constipation [Unknown]
  - Initial insomnia [Unknown]
  - Hyperaesthesia [Unknown]
  - Weight decreased [Unknown]
  - Cough [Unknown]
  - Anxiety [Unknown]
  - Dysphagia [Unknown]
  - Nausea [Unknown]
  - Dysarthria [Unknown]
  - Vision blurred [Unknown]
  - Depression [Unknown]
  - Dysphonia [Unknown]
  - Deafness [Unknown]
  - Asthenia [Unknown]
  - Fatigue [Unknown]
  - Dysuria [Unknown]
  - Glossodynia [Unknown]
  - Dyspnoea [Unknown]
  - Drug ineffective [Unknown]
  - Dizziness [Unknown]

NARRATIVE: CASE EVENT DATE: 201306
